FAERS Safety Report 19408665 (Version 2)
Quarter: 2022Q4

REPORT INFORMATION
  Report Type: Spontaneous
  Country: DE (occurrence: DE)
  Receive Date: 20210613
  Receipt Date: 20221028
  Transmission Date: 20230113
  Serious: Yes (Hospitalization, Other)
  Sender: FDA-Public Use
  Company Number: DE-ADRED-06470-01

PATIENT
  Age: 83 Year
  Sex: Male
  Weight: 94 kg

DRUGS (19)
  1. CLOPIDOGREL BISULFATE [Suspect]
     Active Substance: CLOPIDOGREL BISULFATE
     Indication: Product used for unknown indication
     Dosage: 75 MG, QD ( 1-0-0-0)
     Route: 048
  2. RIVAROXABAN [Suspect]
     Active Substance: RIVAROXABAN
     Indication: Product used for unknown indication
     Dosage: 15 MG, QD (1-0-0-0)
     Route: 048
  3. FENOTEROL HYDROBROMIDE\IPRATROPIUM BROMIDE [Concomitant]
     Active Substance: FENOTEROL HYDROBROMIDE\IPRATROPIUM BROMIDE
     Dosage: UNK, PRN (METERED DOSE INHALER)
     Route: 055
  4. PIROXICAM [Concomitant]
     Active Substance: PIROXICAM
     Dosage: 1-0-1-0
     Route: 055
  5. SIMVASTATIN [Concomitant]
     Active Substance: SIMVASTATIN
     Dosage: 20 MG, QD (0-0-1-0)
     Route: 048
  6. SIMVASTATIN [Concomitant]
     Active Substance: SIMVASTATIN
     Dosage: 20 MG, 0-0-1-0, TABLETS
     Route: 048
  7. TORSEMIDE [Concomitant]
     Active Substance: TORSEMIDE
     Dosage: 20 MG (1-0.5-0-0)
     Route: 048
  8. LANTUS [Concomitant]
     Active Substance: INSULIN GLARGINE
     Dosage: 8 IU, 0-0-1-0, SOLUTION FOR INJECTION / INFUSION
     Route: 058
  9. DOXAZOSIN [Concomitant]
     Active Substance: DOXAZOSIN MESYLATE
     Dosage: 4 MG, BID (1-0-1-0)
     Route: 048
  10. CANDESARTAN AL [Concomitant]
     Dosage: 16 MG, BID ( 1-0-1-0)
     Route: 048
  11. ISDN-AL [Concomitant]
     Dosage: 40 MG, QD (1-0-0-0) SOLUTION FOR INJECTION / INFUSION
     Route: 065
  12. SPIRIVA [Concomitant]
     Active Substance: TIOTROPIUM BROMIDE MONOHYDRATE
     Dosage: 2-0-0-0, METERED DOSE INHALER
     Route: 055
  13. OMEPRAZOLE [Concomitant]
     Active Substance: OMEPRAZOLE
     Dosage: 20 MG, QD (1-0-0-0)
     Route: 048
  14. ACTRAPID [Concomitant]
     Active Substance: INSULIN HUMAN
     Dosage: ACCORDING TO THE SCHEME, INJECTION / INFUSION SOLUTION
     Route: 058
  15. BISOPROLOL [Concomitant]
     Active Substance: BISOPROLOL
     Dosage: 25 MG, QD (1-0-0-0)
     Route: 048
  16. CANDESARTAN [Concomitant]
     Active Substance: CANDESARTAN
     Dosage: 16 MG, BID
     Route: 048
  17. FOSTER [Concomitant]
     Active Substance: BECLOMETHASONE\FORMOTEROL
     Dosage: 1-0-1-0
     Route: 055
  18. SPIRIVA RESPIMAT [Concomitant]
     Active Substance: TIOTROPIUM BROMIDE
     Dosage: 2-0-0-0, METERED DOSE INHALER
     Route: 055
  19. ISDN [Concomitant]
     Dosage: 40 MG, 1-0-0-0, TABLETS
     Route: 048

REACTIONS (8)
  - Somnolence [Unknown]
  - Cough [Unknown]
  - Weight decreased [Recovering/Resolving]
  - Erosive duodenitis [Unknown]
  - Hypochromic anaemia [Unknown]
  - Iron deficiency [Unknown]
  - Dyspnoea [Unknown]
  - Fatigue [Unknown]
